FAERS Safety Report 19732343 (Version 1)
Quarter: 2021Q3

REPORT INFORMATION
  Report Type: Spontaneous
  Country: NL (occurrence: NL)
  Receive Date: 20210822
  Receipt Date: 20210822
  Transmission Date: 20211014
  Serious: Yes (Hospitalization)
  Sender: FDA-Public Use
  Company Number: NL-TEVA-2021-NL-1914020

PATIENT
  Age: 62 Year
  Sex: Male
  Weight: 75 kg

DRUGS (6)
  1. VORICONAZOL TABLET FO 200MG / BRAND NAME NOT SPECIFIED [Concomitant]
     Active Substance: VORICONAZOLE
     Dosage: 200 MG, THERAPY START AND END DATE: ASKU
  2. COLCHICINE TABLET 0,5MG / BRAND NAME NOT SPECIFIED [Concomitant]
     Active Substance: COLCHICINE
     Dosage: 0,5 MG, THERAPY START AND END DATE: ASKU
  3. LENALIDOMIDE CAPSULE 20MG / BRAND NAME NOT SPECIFIED [Suspect]
     Active Substance: LENALIDOMIDE
     Indication: PLASMA CELL MYELOMA
     Dosage: 1 DOSAGE FORMS DAILY; THERAPY END DATE: ASKU
     Route: 065
     Dates: start: 20210215
  4. VALACYCLOVIR [Concomitant]
     Active Substance: VALACYCLOVIR HYDROCHLORIDE
     Indication: EXTENSIVE SWELLING OF VACCINATED LIMB
     Dosage: 500 MG, THERAPY START AND END DATE: ASKU
  5. PANTOPRAZOL TABLET MSR 40MG / PANTOZOL TABLET MSR 40MG [Concomitant]
     Dosage: 40 MG, THERAPY START AND END DATE: ASKU
  6. METOPROLOL TABLET MGA  50MG (SUCCINAAT) / SELOKEEN ZOC  50 TABLET MGA [Concomitant]
     Dosage: 50 MG, THERAPY START AND END DATE: ASKU

REACTIONS (11)
  - Chest pain [Recovering/Resolving]
  - Injection site warmth [Recovered/Resolved]
  - Injection site induration [Recovered/Resolved]
  - Thrombocytopenia [Unknown]
  - Pulmonary embolism [Recovering/Resolving]
  - Injection site erythema [Recovered/Resolved]
  - Injection site cellulitis [Recovered/Resolved]
  - Extensive swelling of vaccinated limb [Recovered/Resolved]
  - Pyrexia [Recovering/Resolving]
  - Dyspnoea [Recovering/Resolving]
  - Injection site pain [Recovered/Resolved]

NARRATIVE: CASE EVENT DATE: 20210422
